FAERS Safety Report 20605409 (Version 1)
Quarter: 2022Q1

REPORT INFORMATION
  Report Type: Spontaneous
  Country: DK (occurrence: DK)
  Receive Date: 20220317
  Receipt Date: 20220317
  Transmission Date: 20220423
  Serious: Yes (Hospitalization, Other)
  Sender: FDA-Public Use
  Company Number: None

PATIENT
  Age: 63 Year
  Sex: Male

DRUGS (1)
  1. SPORANOX [Suspect]
     Active Substance: ITRACONAZOLE
     Indication: Onychomycosis
     Dosage: STRENGTH: 100 MGDOSE INCREASED TO 100 MG A DAY 15JUN2020.
     Route: 048
     Dates: start: 2009, end: 20200706

REACTIONS (4)
  - Hypokalaemia [Recovered/Resolved]
  - Pseudoaldosteronism [Unknown]
  - Dizziness [Unknown]
  - Hypertension [Unknown]

NARRATIVE: CASE EVENT DATE: 20190101
